FAERS Safety Report 21836851 (Version 7)
Quarter: 2023Q2

REPORT INFORMATION
  Report Type: Spontaneous
  Country: US (occurrence: US)
  Receive Date: 20230109
  Receipt Date: 20230615
  Transmission Date: 20230722
  Serious: No
  Sender: FDA-Public Use
  Company Number: US-GLAXOSMITHKLINE-US2023AMR001102

PATIENT
  Age: 60 Year
  Sex: Female

DRUGS (1)
  1. ZEJULA [Suspect]
     Active Substance: NIRAPARIB
     Indication: Fallopian tube cancer
     Dosage: 200 MG, QD
     Dates: start: 20221219

REACTIONS (12)
  - Blood pressure abnormal [Unknown]
  - Fatigue [Recovering/Resolving]
  - Blood pressure increased [Recovered/Resolved]
  - Haemoglobin decreased [Unknown]
  - Constipation [Recovering/Resolving]
  - Muscle spasms [Unknown]
  - Musculoskeletal pain [Unknown]
  - Haematocrit decreased [Unknown]
  - Musculoskeletal discomfort [Unknown]
  - Laboratory test abnormal [Unknown]
  - Solar dermatitis [Recovered/Resolved]
  - Blister [Unknown]

NARRATIVE: CASE EVENT DATE: 20230501
